FAERS Safety Report 18963781 (Version 5)
Quarter: 2022Q2

REPORT INFORMATION
  Report Type: Spontaneous
  Country: US (occurrence: US)
  Receive Date: 20210303
  Receipt Date: 20220519
  Transmission Date: 20220721
  Serious: No
  Sender: FDA-Public Use
  Company Number: US-BIOGEN-2021BI00980642

PATIENT
  Sex: Female

DRUGS (2)
  1. TYSABRI [Suspect]
     Active Substance: NATALIZUMAB
     Indication: Multiple sclerosis
     Route: 065
     Dates: start: 20200421
  2. TYSABRI [Suspect]
     Active Substance: NATALIZUMAB
     Route: 065

REACTIONS (9)
  - Prescribed underdose [Unknown]
  - Wrong technique in device usage process [Unknown]
  - Multiple sclerosis [Not Recovered/Not Resolved]
  - Malaise [Unknown]
  - Vitamin B12 decreased [Unknown]
  - Multiple sclerosis relapse [Unknown]
  - Frustration tolerance decreased [Unknown]
  - Injection site haemorrhage [Recovered/Resolved]
  - Myalgia [Not Recovered/Not Resolved]

NARRATIVE: CASE EVENT DATE: 20210101
